FAERS Safety Report 6496941-4 (Version None)
Quarter: 2009Q4

REPORT INFORMATION
  Report Type: 
  Country: None (occurrence: None)
  Receive Date: 20091215
  Receipt Date: 20090828
  Transmission Date: 20100525
  Serious: No
  Sender: FDA-Public Use
  Company Number: A0730192A

PATIENT
  Sex: Male

DRUGS (2)
  1. AVODART [Suspect]
     Indication: PROSTATE CANCER
     Route: 065
  2. UROXATRAL [Suspect]
     Indication: PROSTATIC DISORDER
     Dosage: 10MG PER DAY
     Route: 048

REACTIONS (3)
  - EYE IRRITATION [None]
  - EYE OPERATION [None]
  - FOREIGN BODY SENSATION IN EYES [None]
